FAERS Safety Report 19592626 (Version 1)
Quarter: 2021Q3

REPORT INFORMATION
  Report Type: Spontaneous
  Country: US (occurrence: US)
  Receive Date: 20210721
  Receipt Date: 20210721
  Transmission Date: 20211014
  Serious: No
  Sender: FDA-Public Use
  Company Number: None

PATIENT
  Age: 56 Year
  Sex: Female
  Weight: 75.6 kg

DRUGS (16)
  1. GAS?X [Concomitant]
     Active Substance: DIMETHICONE
  2. MULTI VITAMIN [Concomitant]
     Active Substance: VITAMINS
  3. VITAMIN D [Concomitant]
     Active Substance: VITAMIN D NOS
  4. LACTAID [Concomitant]
     Active Substance: LACTASE
  5. EMGALITY [Suspect]
     Active Substance: GALCANEZUMAB-GNLM
     Indication: MIGRAINE PROPHYLAXIS
     Dosage: ?          QUANTITY:1 AUTO INJECTION;OTHER FREQUENCY:ONCE A MONTH;?
     Dates: start: 20201218
  6. FLUTICASONE NASAL SPRAY [Concomitant]
     Active Substance: FLUTICASONE
  7. CITRUCEL [Concomitant]
     Active Substance: METHYLCELLULOSE (4000 MPA.S)
  8. PANTOPRAZOLE [Concomitant]
     Active Substance: PANTOPRAZOLE
  9. UBRELVY [Concomitant]
     Active Substance: UBROGEPANT
  10. COLACE [Concomitant]
     Active Substance: DOCUSATE SODIUM
  11. CRANBERRY PILL [Concomitant]
     Active Substance: CRANBERRY
  12. ATORVASTATIN [Concomitant]
     Active Substance: ATORVASTATIN
  13. NADOLOL. [Concomitant]
     Active Substance: NADOLOL
  14. MAGNESIUM OXIDE. [Concomitant]
     Active Substance: MAGNESIUM OXIDE
  15. FLORASTOE MUCINEX [Concomitant]
  16. SENNA [Concomitant]
     Active Substance: SENNA LEAF\SENNOSIDES\SENNOSIDES A AND B

REACTIONS (2)
  - Injection site pruritus [None]
  - Injection site urticaria [None]

NARRATIVE: CASE EVENT DATE: 20210719
